FAERS Safety Report 8062918-0 (Version None)
Quarter: 2012Q1

REPORT INFORMATION
  Report Type: 
  Country: None (occurrence: None)
  Receive Date: 20120123
  Receipt Date: 20120123
  Transmission Date: 20120608
  Serious: Yes (Life-Threatening)
  Sender: FDA-Public Use
  Company Number: None

PATIENT
  Age: 59 Year
  Sex: Male
  Weight: 79.378 kg

DRUGS (2)
  1. SULINDAC [Suspect]
     Indication: CARPAL TUNNEL SYNDROME
     Dosage: 1 PILL
     Route: 048
     Dates: start: 20111215, end: 20111221
  2. SULINDAC [Suspect]
     Indication: ARTHRITIS
     Dosage: 1 PILL
     Route: 048
     Dates: start: 20111215, end: 20111221

REACTIONS (1)
  - JAUNDICE [None]
